FAERS Safety Report 9154208 (Version 1)
Quarter: 2013Q1

REPORT INFORMATION
  Report Type: Spontaneous
  Country: US (occurrence: None)
  Receive Date: 20130306
  Receipt Date: 20130306
  Transmission Date: 20140127
  Serious: Yes (Death, Life-Threatening, Hospitalization, Disabling, Congenital Anomaly, Other)
  Sender: FDA-Public Use
  Company Number: None

PATIENT
  Age: 45 Year
  Sex: Female
  Weight: 68.04 kg

DRUGS (1)
  1. PREDNISONE [Suspect]
     Indication: CHRONIC OBSTRUCTIVE PULMONARY DISEASE
     Dosage: 60 MG DAILY PO
     Route: 048
     Dates: start: 19980101, end: 20130301

REACTIONS (14)
  - Cushing^s syndrome [None]
  - Diabetes mellitus [None]
  - Neuropathy peripheral [None]
  - Addison^s disease [None]
  - Spinal compression fracture [None]
  - Rib fracture [None]
  - Cataract [None]
  - Hepatic steatosis [None]
  - Ageusia [None]
  - Deep vein thrombosis [None]
  - Gastrointestinal disorder [None]
  - Skin atrophy [None]
  - Local swelling [None]
  - Local swelling [None]
